FAERS Safety Report 8151657-3 (Version None)
Quarter: 2012Q1

REPORT INFORMATION
  Report Type: 
  Country: None (occurrence: None)
  Receive Date: 20120220
  Receipt Date: 20120216
  Transmission Date: 20120608
  Serious: Yes (Other)
  Sender: FDA-Public Use
  Company Number: FI-AMGEN-FINSP2012010067

PATIENT
  Age: 71 Year
  Sex: Female

DRUGS (8)
  1. SIMVASTATIN [Concomitant]
  2. PREDNISOLONE [Suspect]
  3. METOPROLOL TARTRATE [Concomitant]
  4. METHOTREXATE [Concomitant]
  5. PARACETAMOL [Concomitant]
  6. FUROSEMIDE [Concomitant]
  7. PROLIA [Suspect]
     Indication: OSTEOPOROSIS
  8. REUMACON [Concomitant]

REACTIONS (1)
  - PERIPHERAL EMBOLISM [None]
